FAERS Safety Report 8806067 (Version 2)
Quarter: 2012Q4

REPORT INFORMATION
  Report Type: 
  Country: BR (occurrence: BR)
  Receive Date: 20120925
  Receipt Date: 20121217
  Transmission Date: 20130627
  Serious: Yes (Other)
  Sender: FDA-Public Use
  Company Number: BR-BAYER-2012-099376

PATIENT
  Age: 30 Year
  Sex: Male

DRUGS (2)
  1. BETAFERON [Suspect]
     Indication: RELAPSING-REMITTING MULTIPLE SCLEROSIS
     Dosage: 1 ml, QOD
     Route: 058
     Dates: start: 2010
  2. BETAJECT COMFORT [Suspect]
     Indication: DEVICE THERAPY
     Dosage: UNK

REACTIONS (3)
  - Abdominal mass [Not Recovered/Not Resolved]
  - Rash macular [Not Recovered/Not Resolved]
  - Injection site pain [Not Recovered/Not Resolved]
